FAERS Safety Report 7385410-5 (Version None)
Quarter: 2011Q1

REPORT INFORMATION
  Report Type: 
  Country: None (occurrence: None)
  Receive Date: 20110330
  Receipt Date: 20110319
  Transmission Date: 20110831
  Serious: Yes (Death)
  Sender: FDA-Public Use
  Company Number: IT-BAXTER-2011BH007914

PATIENT

DRUGS (13)
  1. CYTARABINE [Suspect]
     Route: 037
  2. CYCLOPHOSPHAMIDE [Suspect]
     Indication: B-CELL TYPE ACUTE LEUKAEMIA
     Route: 042
  3. METHOTREXATE [Suspect]
     Route: 037
  4. PREDNISOLONE [Suspect]
     Indication: B-CELL TYPE ACUTE LEUKAEMIA
     Route: 037
  5. DEXAMETHASONE [Suspect]
     Indication: B-CELL TYPE ACUTE LEUKAEMIA
     Route: 048
  6. TENIPOSIDE [Suspect]
     Indication: B-CELL TYPE ACUTE LEUKAEMIA
     Route: 042
  7. VINCRISTINE [Suspect]
     Indication: B-CELL TYPE ACUTE LEUKAEMIA
     Route: 042
  8. PREDNISONE [Suspect]
     Indication: B-CELL TYPE ACUTE LEUKAEMIA
     Route: 048
  9. METHOTREXATE [Suspect]
     Indication: B-CELL TYPE ACUTE LEUKAEMIA
     Route: 042
  10. CYTARABINE [Suspect]
     Indication: B-CELL TYPE ACUTE LEUKAEMIA
     Route: 042
  11. LEVOFOLINIC ACID [Suspect]
     Indication: B-CELL TYPE ACUTE LEUKAEMIA
     Route: 042
  12. IFOSFAMIDE [Suspect]
     Indication: B-CELL TYPE ACUTE LEUKAEMIA
     Route: 042
  13. DOXORUBICIN [Suspect]
     Indication: B-CELL TYPE ACUTE LEUKAEMIA
     Route: 042

REACTIONS (1)
  - TUMOUR LYSIS SYNDROME [None]
